FAERS Safety Report 7242162-7 (Version None)
Quarter: 2011Q1

REPORT INFORMATION
  Report Type: 
  Country: None (occurrence: None)
  Receive Date: 20110124
  Receipt Date: 20110107
  Transmission Date: 20110831
  Serious: Yes (Other)
  Sender: FDA-Public Use
  Company Number: PHHO2011GB01190

PATIENT
  Sex: Female
  Weight: 69.9 kg

DRUGS (1)
  1. DICLOFENAC SODIUM [Suspect]
     Indication: OSTEOARTHRITIS
     Dosage: 50 MG, TID
     Route: 048
     Dates: start: 20080714

REACTIONS (4)
  - ANGINA PECTORIS [None]
  - CHEST PAIN [None]
  - BLOOD CHOLESTEROL INCREASED [None]
  - DYSPNOEA [None]
